FAERS Safety Report 18288633 (Version 2)
Quarter: 2020Q3

REPORT INFORMATION
  Report Type: Spontaneous
  Country: BR (occurrence: BR)
  Receive Date: 20200921
  Receipt Date: 20200922
  Transmission Date: 20201103
  Serious: Yes (Other)
  Sender: FDA-Public Use
  Company Number: NVSC2020BR256327

PATIENT
  Sex: Female

DRUGS (2)
  1. QUETROS [Suspect]
     Active Substance: QUETIAPINE
     Indication: DEPRESSION
     Dosage: 100 MG (STARTED 4 YEARS AGO)
     Route: 065
  2. TEGRETOL [Suspect]
     Active Substance: CARBAMAZEPINE
     Indication: PRODUCT USED FOR UNKNOWN INDICATION
     Dosage: 200 MG (STARTED 40 YEARS AGO)
     Route: 065

REACTIONS (6)
  - Pain in extremity [Recovered/Resolved]
  - Seizure [Recovered/Resolved]
  - Product quality issue [Unknown]
  - Abnormal faeces [Unknown]
  - Head discomfort [Unknown]
  - Seizure [Unknown]
